FAERS Safety Report 9347064 (Version 3)
Quarter: 2013Q3

REPORT INFORMATION
  Report Type: Spontaneous
  Country: JP (occurrence: JP)
  Receive Date: 20130613
  Receipt Date: 20130807
  Transmission Date: 20140515
  Serious: Yes (Hospitalization)
  Sender: FDA-Public Use
  Company Number: JP-GLAXOSMITHKLINE-B0872038A

PATIENT
  Age: 71 Year
  Sex: Female

DRUGS (12)
  1. LAMICTAL [Suspect]
     Indication: DEPRESSION
     Dosage: 75MG TWICE PER DAY
     Route: 048
     Dates: start: 20120821, end: 20120917
  2. LAMICTAL [Suspect]
     Indication: DEPRESSION
     Dosage: 50MG TWICE PER DAY
     Route: 048
     Dates: start: 20120918, end: 20120928
  3. LEXAPRO [Suspect]
     Indication: DEPRESSION
     Dosage: 10MG PER DAY
     Route: 048
     Dates: start: 20120605, end: 20120923
  4. LITHIUM CARBONATE [Suspect]
     Route: 048
     Dates: start: 20120915, end: 20120927
  5. LITHIUM CARBONATE [Suspect]
     Route: 048
     Dates: start: 20120928, end: 20121015
  6. LITHIUM CARBONATE [Suspect]
     Route: 048
     Dates: start: 20121016
  7. SOLANAX [Concomitant]
     Indication: ANXIETY
     Dosage: .4MG TWICE PER DAY
     Route: 048
     Dates: start: 20120522
  8. PALGIN [Concomitant]
     Indication: INSOMNIA
     Dosage: 1MG PER DAY
     Route: 048
     Dates: start: 20120501
  9. ZOLPIDEM TARTRATE [Concomitant]
     Indication: INSOMNIA
     Dosage: 10MG PER DAY
     Route: 048
     Dates: start: 20120301
  10. LAMICTAL [Suspect]
     Indication: DEPRESSION
     Dosage: 50MG PER DAY
     Route: 048
     Dates: start: 20120611, end: 20120625
  11. LAMICTAL [Suspect]
     Indication: DEPRESSION
     Route: 048
     Dates: start: 20120626, end: 20120813
  12. LAMICTAL [Suspect]
     Indication: DEPRESSION
     Dosage: 50MG TWICE PER DAY
     Route: 048
     Dates: start: 20120814, end: 20120820

REACTIONS (5)
  - Mania [Recovered/Resolved]
  - Affect lability [Unknown]
  - Logorrhoea [Unknown]
  - Hyperkinesia [Unknown]
  - Euphoric mood [Unknown]
